FAERS Safety Report 9684026 (Version 1)
Quarter: 2013Q4

REPORT INFORMATION
  Report Type: Spontaneous
  Country: US (occurrence: US)
  Receive Date: 20131112
  Receipt Date: 20131112
  Transmission Date: 20140711
  Serious: No
  Sender: FDA-Public Use
  Company Number: US-ENDO PHARMACEUTICALS INC.-DIAZ20120020

PATIENT
  Sex: Male

DRUGS (2)
  1. DIAZEPAM 10MG TEVA [Suspect]
     Indication: MUSCLE SPASMS
     Route: 048
     Dates: start: 2000
  2. DIAZEPAM 10MG TEVA [Suspect]
     Indication: TINNITUS

REACTIONS (4)
  - Blepharospasm [Not Recovered/Not Resolved]
  - Feeling abnormal [Not Recovered/Not Resolved]
  - Drug ineffective [Not Recovered/Not Resolved]
  - Drug ineffective for unapproved indication [Not Recovered/Not Resolved]
